FAERS Safety Report 15901961 (Version 1)
Quarter: 2019Q1

REPORT INFORMATION
  Report Type: Spontaneous
  Country: US (occurrence: US)
  Receive Date: 20190201
  Receipt Date: 20190201
  Transmission Date: 20190417
  Serious: Yes (Hospitalization)
  Sender: FDA-Public Use
  Company Number: US-UNICHEM PHARMACEUTICALS (USA) INC-UCM201901-000029

PATIENT
  Age: 31 Year
  Sex: Female

DRUGS (4)
  1. SACUBITRIL [Suspect]
     Active Substance: SACUBITRIL
     Indication: CARDIAC FAILURE
  2. VALSARTAN. [Suspect]
     Active Substance: VALSARTAN
  3. VALSARTAN. [Suspect]
     Active Substance: VALSARTAN
     Indication: CARDIAC FAILURE
  4. SACUBITRIL [Suspect]
     Active Substance: SACUBITRIL

REACTIONS (8)
  - Paranoia [Recovered/Resolved]
  - Delusion [Recovered/Resolved]
  - Insomnia [Recovered/Resolved]
  - Restlessness [Recovered/Resolved]
  - Drug intolerance [Unknown]
  - Mental status changes [Recovered/Resolved]
  - Hallucination [Recovered/Resolved]
  - Confabulation [Recovered/Resolved]
